FAERS Safety Report 11151200 (Version 3)
Quarter: 2019Q2

REPORT INFORMATION
  Report Type: Spontaneous
  Country: US (occurrence: US)
  Receive Date: 20150601
  Receipt Date: 20190502
  Transmission Date: 20190711
  Serious: Yes (Other)
  Sender: FDA-Public Use
  Company Number: US-ELI_LILLY_AND_COMPANY-US201505009546

PATIENT
  Sex: Male

DRUGS (2)
  1. CYMBALTA [Suspect]
     Active Substance: DULOXETINE HYDROCHLORIDE
     Indication: DEPRESSION
     Dosage: 30 MG, QD
     Route: 048
     Dates: start: 20120220, end: 201203
  2. CYMBALTA [Suspect]
     Active Substance: DULOXETINE HYDROCHLORIDE
     Indication: ANXIETY
     Dosage: 60 MG, QD
     Route: 048
     Dates: start: 201005, end: 201201

REACTIONS (16)
  - Drug withdrawal syndrome [Unknown]
  - Nightmare [Recovered/Resolved]
  - Vertigo [Unknown]
  - Dizziness [Recovered/Resolved]
  - Dysphoria [Recovered/Resolved]
  - Paraesthesia [Unknown]
  - Insomnia [Recovered/Resolved]
  - Irritability [Unknown]
  - Anxiety [Unknown]
  - Mood swings [Unknown]
  - Sensory disturbance [Recovered/Resolved]
  - Agitation [Recovered/Resolved]
  - Diarrhoea [Unknown]
  - Affect lability [Unknown]
  - Headache [Unknown]
  - Disturbance in attention [Recovered/Resolved]

NARRATIVE: CASE EVENT DATE: 20120301
